FAERS Safety Report 4633584-9 (Version None)
Quarter: 2005Q2

REPORT INFORMATION
  Report Type: 
  Country: None (occurrence: None)
  Receive Date: 20050412
  Receipt Date: 20050412
  Transmission Date: 20051028
  Serious: Yes (Hospitalization)
  Sender: FDA-Public Use
  Company Number: None

PATIENT
  Age: 82 Year
  Sex: Male
  Weight: 83.5 kg

DRUGS (2)
  1. NAPROXEN [Suspect]
  2. ROFECOXIB [Suspect]
     Dosage: 25 MG, 25 MG QD ORAL
     Route: 048

REACTIONS (1)
  - DIVERTICULUM INTESTINAL HAEMORRHAGIC [None]
